FAERS Safety Report 9200420 (Version 2)
Quarter: 2013Q2

REPORT INFORMATION
  Report Type: Spontaneous
  Country: US (occurrence: US)
  Receive Date: 20130329
  Receipt Date: 20130410
  Transmission Date: 20140414
  Serious: Yes (Other)
  Sender: FDA-Public Use
  Company Number: CHPA2013US005529

PATIENT
  Age: 78 Year
  Sex: Male

DRUGS (1)
  1. VOLTAREN GEL [Suspect]
     Indication: OSTEOARTHRITIS
     Dosage: UNK, UNK
     Route: 061

REACTIONS (3)
  - Osteoarthritis [Unknown]
  - Swelling [Recovered/Resolved]
  - Burning sensation [Recovering/Resolving]
